FAERS Safety Report 4595754-8 (Version None)
Quarter: 2005Q1

REPORT INFORMATION
  Report Type: 
  Country: None (occurrence: None)
  Receive Date: 20050224
  Receipt Date: 20050114
  Transmission Date: 20050727
  Serious: Yes (Death, Hospitalization)
  Sender: FDA-Public Use
  Company Number: E044-316-3673

PATIENT
  Age: 83 Year
  Sex: Female
  Weight: 51 kg

DRUGS (11)
  1. E2020 (DONEPEZIL HYDROCHLORIDE) [Suspect]
     Indication: PARKINSON'S DISEASE
     Dosage: 5 MG 1 IN 1 D, ORAL
     Route: 048
     Dates: start: 20040708, end: 20040811
  2. AUGMENTIN '125' [Concomitant]
  3. DUOVENT (DUOVENT) [Concomitant]
  4. POLAROMINE (POLAROMIL) [Concomitant]
  5. SPIRALEXA [Concomitant]
  6. MICROLAX (MICROLAX) [Concomitant]
  7. TOPCAL D3 [Concomitant]
  8. STRUMAZOL (THIAMAZOLE) [Concomitant]
  9. FOSAMAX [Concomitant]
  10. FUROSEMIDE [Concomitant]
  11. SPIRONOLACTONE [Concomitant]

REACTIONS (3)
  - INFECTION [None]
  - PNEUMONIA [None]
  - RESPIRATORY DISTRESS [None]
